FAERS Safety Report 8607699-4 (Version None)
Quarter: 2012Q3

REPORT INFORMATION
  Report Type: 
  Country: None (occurrence: None)
  Receive Date: 20120821
  Receipt Date: 20120809
  Transmission Date: 20120928
  Serious: Yes (Other)
  Sender: FDA-Public Use
  Company Number: US-PFIZER INC-2012200692

PATIENT
  Sex: Male

DRUGS (11)
  1. PLAVIX [Concomitant]
     Dosage: UNK
  2. LYRICA [Suspect]
     Indication: MUSCLE SPASMS
  3. MEGESTROL [Concomitant]
     Indication: APPETITE DISORDER
     Dosage: UNK
  4. TRAMADOL [Concomitant]
     Dosage: UNK, AS NEEDED
  5. PEPCID [Concomitant]
     Dosage: UNK
  6. METOPROLOL [Concomitant]
     Indication: HYPERTENSION
     Dosage: UNK
  7. METOPROLOL [Concomitant]
     Indication: CARDIAC DISORDER
  8. LYRICA [Suspect]
     Indication: PAIN
     Dosage: 50 MG, 3X/DAY
     Route: 048
  9. LORTAB [Concomitant]
     Dosage: UNK, AS NEEDED
  10. BACLOFEN [Concomitant]
     Indication: MUSCLE SPASMS
     Dosage: UNK
  11. RAMIPRIL [Concomitant]
     Indication: HYPERTENSION
     Dosage: UNK

REACTIONS (4)
  - THROMBOSIS [None]
  - OEDEMA PERIPHERAL [None]
  - PRURITUS [None]
  - MUSCULOSKELETAL DISORDER [None]
